FAERS Safety Report 8800450 (Version 1)
Quarter: 2012Q4

REPORT INFORMATION
  Report Type: 
  Country: US (occurrence: US)
  Receive Date: 20120921
  Receipt Date: 20120921
  Transmission Date: 20130627
  Serious: No
  Sender: FDA-Public Use
  Company Number: US-009507513-1209USA005114

PATIENT
  Age: 39 Year
  Sex: Male

DRUGS (3)
  1. FOSAMAX [Suspect]
     Indication: BONE DISORDER
     Dosage: 70 mg, qw
     Route: 048
     Dates: start: 20120911
  2. LOTENSIN (CAPTOPRIL) [Concomitant]
  3. ECOTRIN [Concomitant]

REACTIONS (1)
  - Dysgeusia [Unknown]
